FAERS Safety Report 8462607-4 (Version None)
Quarter: 2012Q2

REPORT INFORMATION
  Report Type: 
  Country: None (occurrence: None)
  Receive Date: 20120620
  Receipt Date: 20120620
  Transmission Date: 20120825
  Serious: Yes (Other)
  Sender: FDA-Public Use
  Company Number: None

PATIENT
  Age: 74 Year
  Sex: Male
  Weight: 59.2987 kg

DRUGS (12)
  1. FUROSEMIDE [Concomitant]
  2. POTASSIUM CHLORIDE CRYS CR [Concomitant]
  3. VANCOMYCIN HYCHLORIDE [Concomitant]
  4. AVELOX [Concomitant]
  5. LIDOCAINE-PRILOCAINE [Concomitant]
  6. LENALIDOMIDE [Suspect]
     Indication: MYELODYSPLASTIC SYNDROME
     Dosage: 10MG DAILY ORAL
     Route: 048
     Dates: start: 20120327, end: 20120619
  7. AMICAR [Concomitant]
  8. VANCOMYCIN HCL [Concomitant]
  9. ALLOPURINOL [Concomitant]
  10. ITRACONAZOLE [Concomitant]
  11. NEXIUM [Concomitant]
  12. VALACYCLOVIR HYDROCHLORIDE [Concomitant]

REACTIONS (2)
  - ADENOCARCINOMA [None]
  - MALIGNANT PALATE NEOPLASM [None]
